FAERS Safety Report 5578625-X (Version None)
Quarter: 2007Q4

REPORT INFORMATION
  Report Type: 
  Country: None (occurrence: None)
  Receive Date: 20071227
  Receipt Date: 20071227
  Transmission Date: 20080405
  Serious: Yes (Hospitalization)
  Sender: FDA-Public Use
  Company Number: None

PATIENT
  Age: 58 Year
  Sex: Female
  Weight: 65 kg

DRUGS (8)
  1. METHOTREXATE [Suspect]
     Indication: NEOPLASM MALIGNANT
     Dosage: 2 X WK X 9 COURSES PAST 9 WKS
  2. SYNTHROID [Concomitant]
  3. DECADRON [Concomitant]
  4. ZETIA [Concomitant]
  5. GLYBURIDE [Concomitant]
  6. ZOFRAN [Concomitant]
  7. COLACE [Concomitant]
  8. VICODIN [Concomitant]

REACTIONS (2)
  - PLEURITIC PAIN [None]
  - PULMONARY TOXICITY [None]
